FAERS Safety Report 19082994 (Version 1)
Quarter: 2021Q2

REPORT INFORMATION
  Report Type: Spontaneous
  Country: US (occurrence: US)
  Receive Date: 20210401
  Receipt Date: 20210401
  Transmission Date: 20210717
  Serious: Yes (Life-Threatening, Hospitalization)
  Sender: FDA-Public Use
  Company Number: US-MYLANLABS-2021M1018968

PATIENT
  Age: 37 Year
  Sex: Male

DRUGS (2)
  1. NALOXONE [Suspect]
     Active Substance: NALOXONE
     Indication: DEPRESSED LEVEL OF CONSCIOUSNESS
     Dosage: 0.4 MILLIGRAM
     Route: 065
  2. NALOXONE [Suspect]
     Active Substance: NALOXONE
     Indication: DRUG THERAPY
     Dosage: 2 MILLIGRAM
     Route: 065

REACTIONS (3)
  - Non-cardiogenic pulmonary oedema [Recovering/Resolving]
  - Mental disorder [Recovering/Resolving]
  - Sinus tachycardia [Recovering/Resolving]
